FAERS Safety Report 16193799 (Version 1)
Quarter: 2019Q2

REPORT INFORMATION
  Report Type: Spontaneous
  Country: US (occurrence: US)
  Receive Date: 20190413
  Receipt Date: 20190413
  Transmission Date: 20190711
  Serious: No
  Sender: FDA-Public Use
  Company Number: US-009507513-1904USA004138

PATIENT
  Age: 41 Year
  Sex: Female
  Weight: 55.78 kg

DRUGS (2)
  1. NEXPLANON [Suspect]
     Active Substance: ETONOGESTREL
     Indication: CONTRACEPTION
     Dosage: 1 ROD, LOCALIZATION: LEFT ARM
     Route: 023
     Dates: start: 201404, end: 20190311
  2. NEXPLANON [Suspect]
     Active Substance: ETONOGESTREL
     Dosage: 1 ROD, LOCALIZATION: LEFT ARM
     Route: 023
     Dates: start: 20190311, end: 20190329

REACTIONS (4)
  - Complication of device removal [Recovered/Resolved]
  - Incorrect route of product administration [Unknown]
  - Incorrect product administration duration [Unknown]
  - Implant site infection [Recovered/Resolved]

NARRATIVE: CASE EVENT DATE: 201404
